FAERS Safety Report 4599237-0 (Version None)
Quarter: 2005Q1

REPORT INFORMATION
  Report Type: 
  Country: None (occurrence: None)
  Receive Date: 20050302
  Receipt Date: 20050302
  Transmission Date: 20050727
  Serious: No
  Sender: FDA-Public Use
  Company Number: None

PATIENT
  Sex: Male
  Weight: 88 kg

DRUGS (3)
  1. VANCOMYCIN [Suspect]
     Dosage: 1.2 GM IV Q.12 HR
     Route: 042
     Dates: start: 20050215, end: 20050301
  2. VANCOMYCIN [Suspect]
  3. INVANZ [Suspect]
     Dosage: 1 GM IV QD
     Route: 042

REACTIONS (1)
  - SWOLLEN TONGUE [None]
